FAERS Safety Report 24862685 (Version 1)
Quarter: 2025Q1

REPORT INFORMATION
  Report Type: Spontaneous
  Country: US (occurrence: US)
  Receive Date: 20250120
  Receipt Date: 20250120
  Transmission Date: 20250409
  Serious: Yes (Life-Threatening, Hospitalization)
  Sender: SANDOZ
  Company Number: US-002147023-NVSC2025US008507

PATIENT
  Age: 70 Year
  Sex: Male

DRUGS (5)
  1. CAPECITABINE [Suspect]
     Active Substance: CAPECITABINE
     Indication: Adenocarcinoma of colon
     Route: 065
  2. FILGRASTIM [Suspect]
     Active Substance: FILGRASTIM
     Indication: Neutropenic colitis
     Route: 065
  3. OCTREOTIDE [Suspect]
     Active Substance: OCTREOTIDE
     Indication: Neutropenic colitis
     Route: 050
  4. OXALIPLATIN [Suspect]
     Active Substance: OXALIPLATIN
     Indication: Adenocarcinoma of colon
     Route: 065
  5. URIDINE TRIACETATE [Suspect]
     Active Substance: URIDINE TRIACETATE
     Indication: Neutropenic colitis
     Route: 065

REACTIONS (4)
  - Neutropenic colitis [Unknown]
  - Gastroenteritis [Unknown]
  - Stomatitis [Unknown]
  - Drug ineffective for unapproved indication [Unknown]
